FAERS Safety Report 11647657 (Version 2)
Quarter: 2015Q4

REPORT INFORMATION
  Report Type: Spontaneous
  Country: US (occurrence: US)
  Receive Date: 20151021
  Receipt Date: 20151106
  Transmission Date: 20160304
  Serious: Yes (Hospitalization, Other)
  Sender: FDA-Public Use
  Company Number: US-TEVA-584722USA

PATIENT
  Age: 66 Year
  Sex: Female

DRUGS (22)
  1. ESTRADIOL. [Suspect]
     Active Substance: ESTRADIOL
     Indication: HORMONE REPLACEMENT THERAPY
     Dosage: .5 MILLIGRAM DAILY;
     Route: 048
     Dates: start: 20141001, end: 201505
  2. LACTOBACILLUS PROBIOTIC [Concomitant]
     Dosage: 10-20 MCG/SVG
     Route: 048
  3. CLOBETASOL [Concomitant]
     Active Substance: CLOBETASOL
     Indication: PSORIASIS
     Route: 061
  4. ASA [Concomitant]
     Active Substance: ASPIRIN
     Indication: PROPHYLAXIS
     Dosage: 81 MILLIGRAM DAILY;
  5. GLUCOSASMINE + MSM + 1000 IU D3 [Concomitant]
  6. KRILL OIL [Concomitant]
     Active Substance: DIETARY SUPPLEMENT
     Dosage: 500 MILLIGRAM DAILY;
  7. METOPROLOL [Concomitant]
     Active Substance: METOPROLOL
     Indication: TACHYCARDIA
  8. UBIQUINOL [Concomitant]
     Active Substance: UBIQUINOL
  9. ALPHA LIPOIC ACID [Concomitant]
     Active Substance: .ALPHA.-LIPOIC ACID
     Dosage: 500 MILLIGRAM DAILY;
     Route: 048
  10. ESTER C [Concomitant]
     Dosage: 500 MILLIGRAM DAILY;
  11. COLLAGEN [Concomitant]
     Active Substance: COLLAGEN
     Route: 048
  12. VESICARE [Concomitant]
     Active Substance: SOLIFENACIN SUCCINATE
     Dosage: AS NEEDED
  13. PROGESTERONE. [Suspect]
     Active Substance: PROGESTERONE
     Indication: HORMONE REPLACEMENT THERAPY
     Dosage: 200 MILLIGRAM DAILY;
     Route: 048
     Dates: start: 20150101, end: 20150104
  14. FISH OIL - OMEGA 3 [Concomitant]
     Dosage: 1199 MILLIGRAM DAILY;
  15. LUTEIN [Concomitant]
     Active Substance: LUTEIN
  16. MAGNESIUM [Concomitant]
     Active Substance: MAGNESIUM
  17. COPAXONE [Concomitant]
     Active Substance: GLATIRAMER ACETATE
     Indication: MULTIPLE SCLEROSIS
     Route: 058
  18. CURCUMEN C COMPLEX [Concomitant]
  19. ASCORBIC ACID C [Concomitant]
     Dosage: 1000 SUSTAINED
  20. ACETYLCARNITINE [Concomitant]
     Active Substance: ACETYLCARNITINE
     Route: 048
  21. CALCIUM CITRATE/VITD3/MAGNESIUM/B6 [Concomitant]
  22. DIFLORAZONE + LCD COMPOUND [Concomitant]
     Dosage: + 0.5%
     Route: 061

REACTIONS (11)
  - Vocal cord atrophy [Unknown]
  - Uterine dilation and curettage [Unknown]
  - Polypectomy [Unknown]
  - Visual impairment [Recovered/Resolved]
  - Multiple sclerosis relapse [Unknown]
  - Cerebrovascular accident [Unknown]
  - Mental impairment [Unknown]
  - Atrial fibrillation [Unknown]
  - Dysstasia [Recovered/Resolved]
  - Muscular weakness [Unknown]
  - Vision blurred [Recovered/Resolved]

NARRATIVE: CASE EVENT DATE: 2015
